FAERS Safety Report 5108265-8 (Version None)
Quarter: 2006Q3

REPORT INFORMATION
  Report Type: 
  Country: None (occurrence: None)
  Receive Date: 20060914
  Receipt Date: 20060914
  Transmission Date: 20061208
  Serious: Yes (Hospitalization)
  Sender: FDA-Public Use
  Company Number: None

PATIENT
  Age: 60 Year
  Sex: Male
  Weight: 86.5 kg

DRUGS (9)
  1. FLUDARABINE [Suspect]
     Indication: CHEMOTHERAPY
     Dosage: 71MG IV QD
     Dates: start: 20060720, end: 20060724
  2. FLUDARABINE [Suspect]
     Indication: MYELODYSPLASTIC SYNDROME
     Dosage: 71MG IV QD
     Dates: start: 20060720, end: 20060724
  3. CYTOXAN [Suspect]
     Dosage: 2GM IV QD
     Dates: start: 20060725, end: 20060726
  4. CLOTRIMAZOLE [Concomitant]
  5. URSODIOL [Concomitant]
  6. FOLIC ACID [Concomitant]
  7. LANSOPRAZOLE [Concomitant]
  8. TAMSULOSIN HCL [Concomitant]
  9. LEUKINE [Concomitant]

REACTIONS (3)
  - ATRIAL FIBRILLATION [None]
  - DYSPNOEA [None]
  - STEM CELL TRANSPLANT [None]
